FAERS Safety Report 8264405-3 (Version None)
Quarter: 2012Q2

REPORT INFORMATION
  Report Type: 
  Country: None (occurrence: None)
  Receive Date: 20120406
  Receipt Date: 20120403
  Transmission Date: 20120825
  Serious: Yes (Death, Hospitalization, Other)
  Sender: FDA-Public Use
  Company Number: PHEH2006US03539

PATIENT
  Sex: Female
  Weight: 82 kg

DRUGS (27)
  1. MULTIPLE VITAMINS [Concomitant]
  2. XELODA [Concomitant]
     Indication: BREAST CANCER
  3. NEURONTIN [Concomitant]
  4. ZOMETA [Suspect]
     Indication: METASTASES TO BONE
     Dates: start: 20040101, end: 20050826
  5. ATENOLOL [Concomitant]
     Dosage: 10 MG, QD
     Route: 048
  6. GINKGO BILOBA [Concomitant]
  7. COMPAZINE [Concomitant]
     Dosage: 10 MG, UNK
     Route: 048
  8. HYOSCYAMINE [Concomitant]
     Dosage: 0.125 UNK, UNK
     Route: 060
  9. ACETAMINOPHEN [Concomitant]
     Dosage: 325 MG, UNK
     Route: 048
  10. HALOPERIDOL LACTATE [Concomitant]
     Dosage: 2 MG/ML, UNK
  11. ZYPREXA [Concomitant]
  12. LITHIUM CARBONATE [Concomitant]
     Dosage: 300 MG, TID
     Route: 048
  13. FLEET ENEMA                        /00766901/ [Concomitant]
  14. NAPROXEN [Concomitant]
  15. NAVELBINE [Concomitant]
     Indication: BREAST CANCER
  16. LOPRESSOR [Concomitant]
  17. PRINIVIL [Concomitant]
     Dosage: 20 MG, QD
     Route: 048
  18. LOXAPINE [Concomitant]
     Dosage: 20 MG, QD
     Route: 048
  19. ATIVAN [Concomitant]
     Dosage: 1 MG, UNK
     Route: 048
  20. LORTAB [Concomitant]
  21. FEMARA [Suspect]
  22. MORPHINE SULFATE [Concomitant]
     Dosage: 20 MG/ML, UNK
  23. GLUCOSAMINE [Concomitant]
  24. AREDIA [Suspect]
     Indication: METASTASES TO BONE
     Dosage: 90 MG, QMO
     Route: 042
     Dates: start: 20040101
  25. COMPAZINE [Concomitant]
     Dosage: 25 MG, UNK
     Route: 054
  26. DULCOLAX [Concomitant]
  27. MS CONTIN [Concomitant]

REACTIONS (44)
  - OSTEONECROSIS OF JAW [None]
  - INJURY [None]
  - SKIN DISCOLOURATION [None]
  - DYSPHAGIA [None]
  - TREMOR [None]
  - DISORIENTATION [None]
  - AGITATION [None]
  - NEOPLASM PROGRESSION [None]
  - NEOPLASM MALIGNANT [None]
  - METASTASES TO BONE [None]
  - MOUTH ULCERATION [None]
  - PURULENT DISCHARGE [None]
  - BLOOD FOLLICLE STIMULATING HORMONE DECREASED [None]
  - BLOOD THYROID STIMULATING HORMONE INCREASED [None]
  - SPEECH DISORDER [None]
  - BACK PAIN [None]
  - DENTAL CARIES [None]
  - MASTICATION DISORDER [None]
  - JAW DISORDER [None]
  - ANAEMIA [None]
  - BREAST CANCER METASTATIC [None]
  - HALLUCINATION [None]
  - CONFUSIONAL STATE [None]
  - ORAL INFECTION [None]
  - EDENTULOUS [None]
  - UNRESPONSIVE TO STIMULI [None]
  - METASTASES TO MENINGES [None]
  - MENTAL STATUS CHANGES [None]
  - EYELID PTOSIS [None]
  - BONE DISORDER [None]
  - PITUITARY TUMOUR [None]
  - HYPOTHALAMO-PITUITARY DISORDER [None]
  - APNOEA [None]
  - OSTEOMYELITIS [None]
  - THROMBOCYTOPENIA [None]
  - BIPOLAR DISORDER [None]
  - DELIRIUM [None]
  - BLOOD PROLACTIN INCREASED [None]
  - AMNESIA [None]
  - ANXIETY [None]
  - OSTEOLYSIS [None]
  - BONE PAIN [None]
  - SWELLING [None]
  - PAIN [None]
